FAERS Safety Report 23942849 (Version 1)
Quarter: 2024Q2

REPORT INFORMATION
  Report Type: Spontaneous
  Country: US (occurrence: US)
  Receive Date: 20240605
  Receipt Date: 20240605
  Transmission Date: 20240715
  Serious: No
  Sender: FDA-Public Use
  Company Number: US-002147023-NVSC2024US118255

PATIENT
  Sex: Male

DRUGS (1)
  1. LEQVIO [Suspect]
     Active Substance: INCLISIRAN SODIUM
     Indication: Low density lipoprotein
     Dosage: 1.5 ML
     Route: 058

REACTIONS (4)
  - Musculoskeletal stiffness [Unknown]
  - Respiratory disorder [Unknown]
  - Muscular weakness [Unknown]
  - Fatigue [Unknown]
